FAERS Safety Report 11789464 (Version 1)
Quarter: 2015Q4

REPORT INFORMATION
  Report Type: Spontaneous
  Country: US (occurrence: None)
  Receive Date: 20151130
  Receipt Date: 20151130
  Transmission Date: 20160305
  Serious: Yes (Other)
  Sender: FDA-Public Use
  Company Number: None

PATIENT
  Age: 67 Year
  Sex: Female

DRUGS (1)
  1. IBRANCE [Suspect]
     Active Substance: PALBOCICLIB
     Indication: BREAST CANCER
     Dosage: IBRANCE  QD  PO
     Route: 048
     Dates: start: 20150512, end: 20151126

REACTIONS (2)
  - Malignant neoplasm progression [None]
  - Drug ineffective [None]

NARRATIVE: CASE EVENT DATE: 20151127
